FAERS Safety Report 7349938-6 (Version None)
Quarter: 2011Q1

REPORT INFORMATION
  Report Type: 
  Country: None (occurrence: None)
  Receive Date: 20110309
  Receipt Date: 20110309
  Transmission Date: 20110831
  Serious: No
  Sender: FDA-Public Use
  Company Number: None

PATIENT
  Sex: Male
  Weight: 68.0396 kg

DRUGS (1)
  1. OXYCONTIN [Suspect]

REACTIONS (3)
  - PRODUCT FORMULATION ISSUE [None]
  - MALAISE [None]
  - DRUG EFFECT DECREASED [None]
